FAERS Safety Report 15812350 (Version 3)
Quarter: 2019Q2

REPORT INFORMATION
  Report Type: Report from Study
  Country: CO (occurrence: CO)
  Receive Date: 20190111
  Receipt Date: 20190517
  Transmission Date: 20190711
  Serious: Yes (Hospitalization, Other)
  Sender: FDA-Public Use
  Company Number: CO-ACTELION-A-CH2018-178159

PATIENT
  Age: 16 Year
  Sex: Male
  Weight: 48 kg

DRUGS (2)
  1. TRACLEER [Suspect]
     Active Substance: BOSENTAN
     Indication: PULMONARY ARTERIAL HYPERTENSION
     Dosage: 62.5 MG, BID
     Route: 048
     Dates: start: 20170512, end: 20190218
  2. TRACLEER [Suspect]
     Active Substance: BOSENTAN
     Dosage: 62.5 MG, BID
     Route: 048
     Dates: start: 20190328

REACTIONS (12)
  - Pneumonia [Recovering/Resolving]
  - Cough [Recovering/Resolving]
  - Varicella [Recovering/Resolving]
  - Choking sensation [Recovering/Resolving]
  - Varicella post vaccine [Recovering/Resolving]
  - Memory impairment [Unknown]
  - Bronchitis [Unknown]
  - Pyrexia [Recovering/Resolving]
  - Decreased appetite [Recovering/Resolving]
  - Hyperhidrosis [Recovering/Resolving]
  - Product dose omission [Unknown]
  - Asphyxia [Unknown]

NARRATIVE: CASE EVENT DATE: 2018
